FAERS Safety Report 6182581-3 (Version None)
Quarter: 2009Q2

REPORT INFORMATION
  Report Type: 
  Country: None (occurrence: None)
  Receive Date: 20090505
  Receipt Date: 20090429
  Transmission Date: 20091009
  Serious: Yes (Hospitalization)
  Sender: FDA-Public Use
  Company Number: FABR-1000790

PATIENT
  Age: 50 Year
  Sex: Male
  Weight: 51.3 kg

DRUGS (11)
  1. FABRAZYME [Suspect]
     Indication: FABRY'S DISEASE
     Dosage: 55 MG, INTRAVENOUS
     Route: 042
     Dates: start: 20030717, end: 20070905
  2. FABRAZYME [Suspect]
     Indication: FABRY'S DISEASE
     Dosage: 55 MG, INTRAVENOUS
     Route: 042
     Dates: start: 20070919, end: 20090429
  3. ASPIRIN [Concomitant]
  4. CORTICOSTEROID NOS (CORTICOSTEROID NOS) [Concomitant]
  5. AZATHIOPRINE [Concomitant]
  6. METOPROLOL TARTRATE [Concomitant]
  7. CARBAMAZEPINE [Concomitant]
  8. CYCLOSPORINE [Concomitant]
  9. PANTOPRAZOLE SODIUM [Concomitant]
  10. CODEINE (CODEINE PHOSPHATE) [Concomitant]
  11. ALPRAZOLAM [Concomitant]

REACTIONS (4)
  - BLOOD PRESSURE SYSTOLIC DECREASED [None]
  - DEHYDRATION [None]
  - DIARRHOEA [None]
  - VOMITING [None]
